FAERS Safety Report 21965866 (Version 2)
Quarter: 2023Q2

REPORT INFORMATION
  Report Type: Spontaneous
  Country: JP (occurrence: JP)
  Receive Date: 20230208
  Receipt Date: 20230502
  Transmission Date: 20230722
  Serious: Yes (Other)
  Sender: FDA-Public Use
  Company Number: JP-TAKEDA-2023TJP001535

PATIENT

DRUGS (1)
  1. CABOMETYX [Suspect]
     Active Substance: CABOZANTINIB S-MALATE
     Indication: Renal cell carcinoma
     Dosage: UNK, QD
     Route: 048

REACTIONS (4)
  - Lipase increased [Unknown]
  - Amylase increased [Unknown]
  - Metastases to pancreas [Unknown]
  - Renal cell carcinoma [Unknown]
